FAERS Safety Report 5853243-4 (Version None)
Quarter: 2008Q3

REPORT INFORMATION
  Report Type: 
  Country: None (occurrence: None)
  Receive Date: 20080820
  Receipt Date: 20080812
  Transmission Date: 20090109
  Serious: Yes (Disabling)
  Sender: FDA-Public Use
  Company Number: 19911

PATIENT
  Age: 39 Year
  Sex: Female

DRUGS (9)
  1. ARA-C [Suspect]
     Indication: ACUTE MYELOID LEUKAEMIA
  2. ARA-C [Suspect]
     Indication: ACUTE MYELOID LEUKAEMIA RECURRENT
  3. METHOTREXATE SODIUM [Suspect]
     Indication: PROPHYLAXIS AGAINST GRAFT VERSUS HOST DISEASE
  4. DAUNORUBICIN HCL [Suspect]
     Indication: ACUTE MYELOID LEUKAEMIA
     Dosage: 20 MG FREQ UNK UNK
  5. ETOPOSIDE [Suspect]
     Indication: ACUTE MYELOID LEUKAEMIA
  6. MITOXANTRONE [Suspect]
     Indication: ACUTE MYELOID LEUKAEMIA RECURRENT
  7. TACROLIMUS [Suspect]
     Indication: PROPHYLAXIS AGAINST GRAFT VERSUS HOST DISEASE
  8. ELSPAR [Suspect]
     Indication: ACUTE MYELOID LEUKAEMIA RECURRENT
  9. CYCLOPHOSPHAMIDE [Suspect]
     Indication: ACUTE MYELOID LEUKAEMIA RECURRENT
     Dosage: 60 MG/KG DAILY UNK

REACTIONS (3)
  - GUILLAIN-BARRE SYNDROME [None]
  - LEUKAEMIA [None]
  - STEM CELL TRANSPLANT [None]
